FAERS Safety Report 11759648 (Version 4)
Quarter: 2016Q4

REPORT INFORMATION
  Report Type: Spontaneous
  Country: US (occurrence: US)
  Receive Date: 20151120
  Receipt Date: 20161026
  Transmission Date: 20170206
  Serious: No
  Sender: FDA-Public Use
  Company Number: US-ACTELION PHARMACEUTICALS US, INC.-A-NJ2015-127563

PATIENT
  Age: 49 Year
  Sex: Female

DRUGS (1)
  1. VALCHLOR [Suspect]
     Active Substance: MECHLORETHAMINE
     Indication: PRODUCT USED FOR UNKNOWN INDICATION
     Dosage: UNK, DAILY
     Route: 061
     Dates: start: 20151106

REACTIONS (7)
  - Cataract [Not Recovered/Not Resolved]
  - Depression [Not Recovered/Not Resolved]
  - Thermal burn [Not Recovered/Not Resolved]
  - Nervousness [Unknown]
  - Tinea pedis [Unknown]
  - Skin lesion [Unknown]
  - Dry skin [Not Recovered/Not Resolved]
